FAERS Safety Report 7366891-X (Version None)
Quarter: 2011Q1

REPORT INFORMATION
  Report Type: 
  Country: None (occurrence: None)
  Receive Date: 20110322
  Receipt Date: 20110314
  Transmission Date: 20110831
  Serious: Yes (Death, Hospitalization, Congenital Anomaly)
  Sender: FDA-Public Use
  Company Number: A0919246A

PATIENT
  Sex: Male

DRUGS (1)
  1. PAXIL [Suspect]
     Route: 064

REACTIONS (4)
  - FALLOT'S TETRALOGY [None]
  - RIGHT VENTRICULAR FAILURE [None]
  - DRUG EXPOSURE DURING PREGNANCY [None]
  - HYPOXIA [None]
